FAERS Safety Report 12492387 (Version 1)
Quarter: 2016Q2

REPORT INFORMATION
  Report Type: Spontaneous
  Country: FR (occurrence: FR)
  Receive Date: 20160623
  Receipt Date: 20160623
  Transmission Date: 20160815
  Serious: Yes (Other)
  Sender: FDA-Public Use
  Company Number: FR-PFIZER INC-2016242900

PATIENT
  Age: 65 Year
  Sex: Male

DRUGS (14)
  1. TRACLEER [Suspect]
     Active Substance: BOSENTAN
     Indication: PULMONARY ARTERIAL HYPERTENSION
     Dosage: 62.5 MG, 2X/DAY
     Dates: start: 20160119, end: 20160220
  2. TAHOR [Concomitant]
     Active Substance: ATORVASTATIN CALCIUM
  3. FLIXOTIDE [Concomitant]
     Active Substance: FLUTICASONE PROPIONATE
     Dosage: 4 PUFFS, DAILY
  4. REVATIO [Suspect]
     Active Substance: SILDENAFIL CITRATE
     Indication: PULMONARY ARTERIAL HYPERTENSION
     Dosage: 20 MG, 3X/DAY
     Dates: start: 201207
  5. REVATIO [Suspect]
     Active Substance: SILDENAFIL CITRATE
     Indication: EMPHYSEMA
     Dosage: 20 MG, 4X/DAY
     Dates: start: 20160310
  6. ONBREZ [Concomitant]
     Active Substance: INDACATEROL
  7. ISOPTINE [Concomitant]
     Active Substance: VERAPAMIL HYDROCHLORIDE
  8. PROCORALAN [Concomitant]
     Active Substance: IVABRADINE
  9. PARIET [Concomitant]
     Active Substance: RABEPRAZOLE SODIUM
  10. KARDEGIC [Concomitant]
     Active Substance: ASPIRIN LYSINE
  11. REVATIO [Suspect]
     Active Substance: SILDENAFIL CITRATE
     Dosage: 20 MG, 3X/DAY
     Dates: start: 20160510
  12. TRIATEC [Concomitant]
     Active Substance: RAMIPRIL
  13. SPIRIVA [Concomitant]
     Active Substance: TIOTROPIUM BROMIDE MONOHYDRATE
  14. LASILIX [Concomitant]
     Active Substance: FUROSEMIDE

REACTIONS (7)
  - Condition aggravated [Recovering/Resolving]
  - Oxygen saturation decreased [Recovering/Resolving]
  - Fatigue [Recovered/Resolved]
  - Pulmonary arterial hypertension [Recovering/Resolving]
  - Drug ineffective [Recovered/Resolved]
  - Dyspnoea [Recovering/Resolving]
  - Intentional product use issue [Recovered/Resolved]

NARRATIVE: CASE EVENT DATE: 20151224
